FAERS Safety Report 7832447-5 (Version None)
Quarter: 2011Q4

REPORT INFORMATION
  Report Type: 
  Country: None (occurrence: None)
  Receive Date: 20111023
  Receipt Date: 20110914
  Transmission Date: 20120403
  Serious: Yes (Hospitalization)
  Sender: FDA-Public Use
  Company Number: PHHY2011TW86375

PATIENT

DRUGS (4)
  1. TRANYLCYPROMINE SULFATE [Concomitant]
  2. METHYLERGOMETRINE MALEATE [Suspect]
  3. PROSTAGLANDINS [Concomitant]
  4. OXYTOCIN [Suspect]

REACTIONS (8)
  - ABDOMINAL DISTENSION [None]
  - VOMITING [None]
  - ILEUS PARALYTIC [None]
  - GASTROINTESTINAL SOUNDS ABNORMAL [None]
  - ABDOMINAL PAIN [None]
  - INTESTINAL DILATATION [None]
  - UTERINE HAEMORRHAGE [None]
  - GASTRIC DILATATION [None]
